FAERS Safety Report 16937515 (Version 6)
Quarter: 2020Q1

REPORT INFORMATION
  Report Type: Report from Study
  Country: IE (occurrence: IE)
  Receive Date: 20191018
  Receipt Date: 20200117
  Transmission Date: 20200409
  Serious: Yes (Hospitalization, Other)
  Sender: FDA-Public Use
  Company Number: NVSC2019IE008637

PATIENT
  Age: 66 Year
  Sex: Male

DRUGS (2)
  1. VOTRIENT [Suspect]
     Active Substance: PAZOPANIB HYDROCHLORIDE
     Indication: PRODUCT USED FOR UNKNOWN INDICATION
     Dosage: 800 MG
     Route: 065
  2. VOTRIENT [Suspect]
     Active Substance: PAZOPANIB HYDROCHLORIDE
     Dosage: 800 MG
     Route: 065
     Dates: start: 20190924

REACTIONS (7)
  - Pyrexia [Not Recovered/Not Resolved]
  - Infection [Unknown]
  - Limb discomfort [Unknown]
  - Blood urea abnormal [Not Recovered/Not Resolved]
  - Arthralgia [Not Recovered/Not Resolved]
  - Metastases to central nervous system [Unknown]
  - Blood electrolytes abnormal [Recovering/Resolving]

NARRATIVE: CASE EVENT DATE: 20191004
